FAERS Safety Report 9908422 (Version 1)
Quarter: 2014Q1

REPORT INFORMATION
  Report Type: Spontaneous
  Country: US (occurrence: None)
  Receive Date: 20140214
  Receipt Date: 20140214
  Transmission Date: 20141002
  Serious: Yes (Hospitalization)
  Sender: FDA-Public Use
  Company Number: None

PATIENT
  Age: 41 Year
  Sex: Male
  Weight: 88.4 kg

DRUGS (9)
  1. FLUORESCEIN [Suspect]
     Indication: EYE OPERATION
     Dosage: RECENT
  2. NIACIN [Concomitant]
  3. ASA [Concomitant]
  4. VITAMIN B12 [Concomitant]
  5. VITAMIN E [Concomitant]
  6. OMEGA 3 [Concomitant]
  7. MVI [Concomitant]
  8. SIMVASTATIN [Concomitant]
  9. ZESTORETIC [Concomitant]

REACTIONS (7)
  - Nausea [None]
  - Vomiting [None]
  - Hyperhidrosis [None]
  - Dizziness [None]
  - Feeling abnormal [None]
  - Chest pain [None]
  - Blood glucose increased [None]
